FAERS Safety Report 16460021 (Version 2)
Quarter: 2019Q3

REPORT INFORMATION
  Report Type: Report from Study
  Country: CA (occurrence: CA)
  Receive Date: 20190620
  Receipt Date: 20190709
  Transmission Date: 20191004
  Serious: Yes (Other)
  Sender: FDA-Public Use
  Company Number: CA-NALPROPION PHARMACEUTICALS INC.-2019-007657

PATIENT

DRUGS (4)
  1. CONTRAVE [Suspect]
     Active Substance: BUPROPION HYDROCHLORIDE\NALTREXONE HYDROCHLORIDE
     Indication: WEIGHT CONTROL
     Dosage: 1 DOSAGE FORMS, 1 IN 1D, DATES APPROXIMATE
     Route: 048
     Dates: start: 20190501, end: 20190507
  2. CONTRAVE [Suspect]
     Active Substance: BUPROPION HYDROCHLORIDE\NALTREXONE HYDROCHLORIDE
     Dosage: 2 TABLETS IN THE MORNING, 1 TABLET IN THE EVENING, DATES APPROXIMATE
     Route: 048
     Dates: start: 20190515, end: 20190521
  3. CONTRAVE [Suspect]
     Active Substance: BUPROPION HYDROCHLORIDE\NALTREXONE HYDROCHLORIDE
     Dosage: 1 TABLET IN THE MORNING, 1 TABLET IN THE EVENING, DATES APPROXIMATE
     Route: 048
     Dates: start: 20190508, end: 20190514
  4. CONTRAVE [Suspect]
     Active Substance: BUPROPION HYDROCHLORIDE\NALTREXONE HYDROCHLORIDE
     Dosage: 2 TABLETS IN THE MORNING, 2 TABLETS IN THE EVENING, DATES APPROXIMATE
     Route: 048
     Dates: start: 20190522, end: 20190618

REACTIONS (3)
  - Gallbladder disorder [Unknown]
  - Intentional dose omission [Unknown]
  - Arthropathy [Unknown]

NARRATIVE: CASE EVENT DATE: 2019
